FAERS Safety Report 24240903 (Version 5)
Quarter: 2025Q2

REPORT INFORMATION
  Report Type: Report from Study
  Country: US (occurrence: US)
  Receive Date: 20240823
  Receipt Date: 20250415
  Transmission Date: 20250716
  Serious: Yes (Hospitalization)
  Sender: TAKEDA
  Company Number: US-TAKEDA-2023TUS066577

PATIENT
  Sex: Male

DRUGS (37)
  1. IXAZOMIB [Suspect]
     Active Substance: IXAZOMIB
     Indication: Plasma cell myeloma
  2. IXAZOMIB [Suspect]
     Active Substance: IXAZOMIB
     Indication: White blood cell count decreased
  3. IXAZOMIB [Suspect]
     Active Substance: IXAZOMIB
  4. IXAZOMIB [Suspect]
     Active Substance: IXAZOMIB
  5. IXAZOMIB [Suspect]
     Active Substance: IXAZOMIB
  6. IXAZOMIB [Suspect]
     Active Substance: IXAZOMIB
     Dosage: 4 MILLIGRAM, 1/WEEK
  7. REVLIMID [Suspect]
     Active Substance: LENALIDOMIDE
     Indication: Plasma cell myeloma
  8. VELCADE [Concomitant]
     Active Substance: BORTEZOMIB
  9. CHONDROITIN SULFATE A\GLUCOSAMINE [Concomitant]
     Active Substance: CHONDROITIN SULFATE A\GLUCOSAMINE
  10. ROSUVASTATIN CALCIUM [Concomitant]
     Active Substance: ROSUVASTATIN CALCIUM
     Dosage: 10 MILLIGRAM, QD
  11. PROCHLORPERAZINE MALEATE [Concomitant]
     Active Substance: PROCHLORPERAZINE MALEATE
  12. XGEVA [Concomitant]
     Active Substance: DENOSUMAB
  13. VITAMIN D [Concomitant]
     Active Substance: VITAMIN D NOS
  14. CALCIUM CITRATE\VITAMIN D [Concomitant]
     Active Substance: CALCIUM CITRATE\VITAMIN D
     Dosage: 250-200 MILLIGRAM, QD
  15. DEXAMETHASONE [Concomitant]
     Active Substance: DEXAMETHASONE
  16. ACYCLOVIR [Concomitant]
     Active Substance: ACYCLOVIR
  17. CYCLOBENZAPRINE HYDROCHLORIDE [Concomitant]
     Active Substance: CYCLOBENZAPRINE HYDROCHLORIDE
  18. LOSARTAN POTASSIUM [Concomitant]
     Active Substance: LOSARTAN POTASSIUM
     Dosage: 50 MILLIGRAM, QD
  19. VALTREX [Concomitant]
     Active Substance: VALACYCLOVIR HYDROCHLORIDE
  20. ONDANSETRON [Concomitant]
     Active Substance: ONDANSETRON
  21. ASPIRIN [Concomitant]
     Active Substance: ASPIRIN
  22. CALCIUM\ERGOCALCIFEROL [Concomitant]
     Active Substance: CALCIUM\ERGOCALCIFEROL
  23. HYDROCHLOROTHIAZIDE [Concomitant]
     Active Substance: HYDROCHLOROTHIAZIDE
  24. HYDROCORTISONE [Concomitant]
     Active Substance: HYDROCORTISONE
  25. IBUPROFEN [Concomitant]
     Active Substance: IBUPROFEN
  26. METHOCARBAMOL [Concomitant]
     Active Substance: METHOCARBAMOL
  27. TYLENOL [Concomitant]
     Active Substance: ACETAMINOPHEN
  28. VITAMIN D3 [Concomitant]
     Active Substance: CHOLECALCIFEROL
     Dosage: 25 MICROGRAM, QD
  29. VITAMIN C [Concomitant]
     Active Substance: ASCORBIC ACID
  30. HYDROCODONE\IBUPROFEN [Concomitant]
     Active Substance: HYDROCODONE\IBUPROFEN
  31. LASIX [Concomitant]
     Active Substance: FUROSEMIDE
  32. ZOFRAN [Concomitant]
     Active Substance: ONDANSETRON HYDROCHLORIDE
  33. DIPHENOXYLATE [Concomitant]
     Active Substance: DIPHENOXYLATE
  34. ATROPINE [Concomitant]
     Active Substance: ATROPINE
  35. FUROSEMIDE [Concomitant]
     Active Substance: FUROSEMIDE
  36. DIPHENOXYLATE HYDROCHLORIDE AND ATROPINE SULFATE [Concomitant]
     Active Substance: ATROPINE SULFATE\DIPHENOXYLATE HYDROCHLORIDE
  37. LENALIDOMIDE [Concomitant]
     Active Substance: LENALIDOMIDE

REACTIONS (17)
  - Arthritis infective [Unknown]
  - Abscess oral [Recovering/Resolving]
  - Oedema peripheral [Not Recovered/Not Resolved]
  - Vomiting [Recovered/Resolved]
  - Diarrhoea [Not Recovered/Not Resolved]
  - Nausea [Not Recovered/Not Resolved]
  - Rash [Recovering/Resolving]
  - Fluid retention [Not Recovered/Not Resolved]
  - Contusion [Not Recovered/Not Resolved]
  - Muscle spasms [Recovering/Resolving]
  - Product dose omission issue [Unknown]
  - Wound infection [Not Recovered/Not Resolved]
  - Peripheral swelling [Recovering/Resolving]
  - Joint swelling [Recovering/Resolving]
  - Brain fog [Unknown]
  - Headache [Unknown]
  - Back pain [Unknown]
